FAERS Safety Report 12384952 (Version 2)
Quarter: 2016Q4

REPORT INFORMATION
  Report Type: Spontaneous
  Country: JP (occurrence: JP)
  Receive Date: 20160519
  Receipt Date: 20161212
  Transmission Date: 20170207
  Serious: Yes (Death)
  Sender: FDA-Public Use
  Company Number: JP-ACTELION-A-CH2016-136211

PATIENT
  Age: 65 Year
  Sex: Female

DRUGS (6)
  1. SILDENAFIL. [Concomitant]
     Active Substance: SILDENAFIL
  2. OXYGEN. [Concomitant]
     Active Substance: OXYGEN
  3. ASPIRIN. [Concomitant]
     Active Substance: ASPIRIN
  4. PREDNISOLONE. [Concomitant]
     Active Substance: PREDNISOLONE
  5. WARFARIN [Concomitant]
     Active Substance: WARFARIN
  6. OPSUMIT [Suspect]
     Active Substance: MACITENTAN
     Indication: PULMONARY ARTERIAL HYPERTENSION
     Dosage: 10 MG, OD
     Route: 048
     Dates: start: 20151226, end: 20160327

REACTIONS (3)
  - Cardiac failure [Fatal]
  - Oedema peripheral [Not Recovered/Not Resolved]
  - Gastrointestinal necrosis [Fatal]

NARRATIVE: CASE EVENT DATE: 20160327
